FAERS Safety Report 5744818-1 (Version None)
Quarter: 2008Q2

REPORT INFORMATION
  Report Type: 
  Country: None (occurrence: None)
  Receive Date: 20080516
  Receipt Date: 20080505
  Transmission Date: 20081010
  Serious: Yes (Other)
  Sender: FDA-Public Use
  Company Number: 310022J08USA

PATIENT
  Age: 20 Week

DRUGS (1)
  1. GONAL-F [Suspect]
     Indication: ASSISTED FERTILISATION

REACTIONS (1)
  - INTRA-UTERINE DEATH [None]
